FAERS Safety Report 11317602 (Version 1)
Quarter: 2015Q3

REPORT INFORMATION
  Report Type: Spontaneous
  Country: US (occurrence: None)
  Receive Date: 20150727
  Receipt Date: 20150727
  Transmission Date: 20151125
  Serious: Yes (Other)
  Sender: FDA-Public Use
  Company Number: None

PATIENT
  Age: 65 Year
  Sex: Male
  Weight: 72.58 kg

DRUGS (6)
  1. CRESTOR [Concomitant]
     Active Substance: ROSUVASTATIN CALCIUM
  2. CARAFATE [Suspect]
     Active Substance: SUCRALFATE
     Indication: GASTRITIS EROSIVE
     Dosage: 2 TEASP
     Route: 048
     Dates: start: 20150721, end: 20150725
  3. CARAFATE [Suspect]
     Active Substance: SUCRALFATE
     Indication: GASTROOESOPHAGEAL REFLUX DISEASE
     Dosage: 2 TEASP
     Route: 048
     Dates: start: 20150721, end: 20150725
  4. PLAVIX [Concomitant]
     Active Substance: CLOPIDOGREL BISULFATE
  5. PANTOPRAZOLE SODIUM. [Concomitant]
     Active Substance: PANTOPRAZOLE SODIUM
  6. METOPROLOL ER SUCCINATE [Concomitant]
     Active Substance: METOPROLOL SUCCINATE

REACTIONS (7)
  - Hot flush [None]
  - Urticaria [None]
  - Rash generalised [None]
  - Dizziness [None]
  - Dyspnoea [None]
  - Contusion [None]
  - Hypersensitivity [None]

NARRATIVE: CASE EVENT DATE: 20150725
